FAERS Safety Report 13246069 (Version 1)
Quarter: 2017Q1

REPORT INFORMATION
  Report Type: Spontaneous
  Country: DK (occurrence: DK)
  Receive Date: 20170217
  Receipt Date: 20170217
  Transmission Date: 20170428
  Serious: Yes (Hospitalization)
  Sender: FDA-Public Use
  Company Number: DK-UCBSA-2017005945

PATIENT
  Sex: Male

DRUGS (26)
  1. VIMPAT [Suspect]
     Active Substance: LACOSAMIDE
     Indication: EPILEPSY
     Dosage: UNK
     Dates: start: 20130201
  2. KEPPRA [Suspect]
     Active Substance: LEVETIRACETAM
     Indication: EPILEPSY
     Dosage: UNK
  3. SABRILEX [Suspect]
     Active Substance: VIGABATRIN
     Dosage: UNK
  4. LAMICTAL [Suspect]
     Active Substance: LAMOTRIGINE
     Indication: EPILEPSY
     Dosage: UNK
     Dates: start: 200203
  5. PHENOBARBITAL. [Suspect]
     Active Substance: PHENOBARBITAL
     Indication: EPILEPSY
     Dosage: UNK
     Dates: start: 19960528
  6. STESOLID [Concomitant]
     Active Substance: DIAZEPAM
     Indication: EPILEPSY
     Dosage: UNK
  7. FRISIUM [Suspect]
     Active Substance: CLOBAZAM
     Dosage: UNK
     Dates: start: 201403
  8. DEPRAKINE [Suspect]
     Active Substance: VALPROIC ACID
     Indication: EPILEPSY
     Dosage: UNK
     Dates: start: 1996
  9. FRISIUM [Suspect]
     Active Substance: CLOBAZAM
     Indication: EPILEPSY
     Dosage: UNK
     Dates: start: 199904
  10. TOPAMAX [Suspect]
     Active Substance: TOPIRAMATE
     Indication: EPILEPSY
     Dosage: UNK
  11. TRILEPTAL [Suspect]
     Active Substance: OXCARBAZEPINE
     Indication: EPILEPSY
     Dosage: UNK
     Dates: start: 19960711
  12. GABAPENTIN. [Suspect]
     Active Substance: GABAPENTIN
     Indication: EPILEPSY
     Dosage: UNK
     Dates: start: 19960731
  13. VIMPAT [Suspect]
     Active Substance: LACOSAMIDE
     Dosage: UNK
     Dates: start: 201401
  14. ZEBINIX [Suspect]
     Active Substance: ESLICARBAZEPINE ACETATE
     Indication: EPILEPSY
     Dosage: UNK
     Dates: start: 201206
  15. APYDAN [Suspect]
     Active Substance: OXCARBAZEPINE
     Indication: EPILEPSY
     Dosage: UNK
     Dates: start: 200009
  16. DEPRAKINE [Suspect]
     Active Substance: VALPROIC ACID
     Dosage: UNK
     Dates: end: 199803
  17. LYRICA [Suspect]
     Active Substance: PREGABALIN
     Indication: EPILEPSY
     Dosage: UNK
     Dates: start: 201306
  18. KEPPRA [Suspect]
     Active Substance: LEVETIRACETAM
     Dosage: DOSE INCREASED
  19. LAMICTAL [Suspect]
     Active Substance: LAMOTRIGINE
     Dosage: UNK
     Dates: start: 201410
  20. LAMICTAL [Suspect]
     Active Substance: LAMOTRIGINE
     Dosage: DOSE INCREASES
  21. LYRICA [Suspect]
     Active Substance: PREGABALIN
     Dosage: UNK
     Dates: start: 201403
  22. TRILEPTAL [Suspect]
     Active Substance: OXCARBAZEPINE
     Dosage: UNK
     Dates: start: 199905
  23. SABRILEX [Suspect]
     Active Substance: VIGABATRIN
     Indication: EPILEPSY
     Dosage: UNK
     Dates: start: 19960617
  24. INOVELON [Suspect]
     Active Substance: RUFINAMIDE
     Indication: EPILEPSY
     Dosage: UNK
     Dates: start: 201112
  25. TRILEPTAL [Suspect]
     Active Substance: OXCARBAZEPINE
     Dosage: UNK
     Dates: start: 201403
  26. MELATONIN [Concomitant]
     Active Substance: MELATONIN
     Indication: MIDDLE INSOMNIA
     Dosage: UNK
     Dates: start: 1998

REACTIONS (2)
  - Upper limb fracture [Unknown]
  - Osteoporosis [Unknown]

NARRATIVE: CASE EVENT DATE: 2014
